FAERS Safety Report 23863329 (Version 1)
Quarter: 2024Q2

REPORT INFORMATION
  Report Type: Spontaneous
  Country: PT (occurrence: PT)
  Receive Date: 20240516
  Receipt Date: 20240516
  Transmission Date: 20240715
  Serious: Yes (Hospitalization, Other)
  Sender: FDA-Public Use
  Company Number: PT-GLAXOSMITHKLINE-PT2024GSK060092

PATIENT

DRUGS (1)
  1. LAMOTRIGINE [Suspect]
     Active Substance: LAMOTRIGINE
     Indication: Bipolar disorder
     Dosage: UNK

REACTIONS (6)
  - Drug-induced liver injury [Unknown]
  - Drug hypersensitivity [Unknown]
  - Pyrexia [Unknown]
  - Myalgia [Unknown]
  - Rash macular [Unknown]
  - Hypoalbuminaemia [Unknown]
